FAERS Safety Report 23642910 (Version 2)
Quarter: 2024Q1

REPORT INFORMATION
  Report Type: Report from Study
  Country: US (occurrence: US)
  Receive Date: 20240318
  Receipt Date: 20240318
  Transmission Date: 20240410
  Serious: Yes (Death, Other)
  Sender: FDA-Public Use
  Company Number: US-ABBVIE-5681525

PATIENT
  Age: 43 Year
  Sex: Male

DRUGS (2)
  1. VENCLEXTA [Suspect]
     Active Substance: VENETOCLAX
     Indication: Lymphocytic leukaemia
     Dosage: TAKE 4 TABLET(S) BY MOUTH DAILY FROM NOW ONWARDS
     Route: 048
  2. VENCLEXTA [Suspect]
     Active Substance: VENETOCLAX
     Indication: Lymphocytic leukaemia
     Route: 048

REACTIONS (1)
  - Lymphoma [Fatal]

NARRATIVE: CASE EVENT DATE: 20230328
